FAERS Safety Report 22222098 (Version 4)
Quarter: 2023Q2

REPORT INFORMATION
  Report Type: Spontaneous
  Country: US (occurrence: US)
  Receive Date: 20230418
  Receipt Date: 20230621
  Transmission Date: 20230721
  Serious: No
  Sender: FDA-Public Use
  Company Number: US-PFIZER INC-202300147778

PATIENT
  Sex: Female

DRUGS (1)
  1. SOMATROPIN [Suspect]
     Active Substance: SOMATROPIN
     Dosage: 0.2 MG (0.2MG PRE FILLED SYRINGE, DOSE FORMULA SOLUTION)

REACTIONS (3)
  - Product label confusion [Unknown]
  - Poor quality device used [Unknown]
  - Device issue [Unknown]
